FAERS Safety Report 6490908-8 (Version None)
Quarter: 2009Q4

REPORT INFORMATION
  Report Type: 
  Country: None (occurrence: None)
  Receive Date: 20091211
  Receipt Date: 20091201
  Transmission Date: 20100525
  Serious: Yes (Other)
  Sender: FDA-Public Use
  Company Number: US-WATSON-2009-10434

PATIENT

DRUGS (1)
  1. NITROFURANTOIN [Suspect]
     Indication: DRUG USE FOR UNKNOWN INDICATION
     Dosage: UNK
     Route: 064

REACTIONS (4)
  - ANOPHTHALMOS [None]
  - ATRIAL SEPTAL DEFECT [None]
  - HYPOPLASTIC LEFT HEART SYNDROME [None]
  - MICROPHTHALMOS [None]
